FAERS Safety Report 25393240 (Version 1)
Quarter: 2025Q2

REPORT INFORMATION
  Report Type: Spontaneous
  Country: US (occurrence: US)
  Receive Date: 20250604
  Receipt Date: 20250604
  Transmission Date: 20250717
  Serious: Yes (Hospitalization, Other)
  Sender: BOEHRINGER INGELHEIM
  Company Number: US-Komodo Health-a23aa000007qA8vAAE

PATIENT
  Age: 75 Year
  Sex: Female

DRUGS (3)
  1. STIOLTO RESPIMAT [Suspect]
     Active Substance: OLODATEROL HYDROCHLORIDE\TIOTROPIUM BROMIDE MONOHYDRATE
     Indication: Emphysema
     Dosage: 2 PUFFS
  2. BREZTRI [Suspect]
     Active Substance: BUDESONIDE\FORMOTEROL\GLYCOPYRROLATE
     Indication: Emphysema
  3. EMERGEN-C [Suspect]
     Active Substance: VITAMINS
     Indication: Product used for unknown indication

REACTIONS (15)
  - Endobronchial valve implantation [Recovered/Resolved]
  - Atrial fibrillation [Unknown]
  - Breast cancer [Unknown]
  - Stress cardiomyopathy [Unknown]
  - Cataract operation complication [Unknown]
  - Cataract [Unknown]
  - Pneumonia [Recovered/Resolved]
  - Dacryocanaliculitis [Recovered/Resolved]
  - Fall [Unknown]
  - Back pain [Not Recovered/Not Resolved]
  - Muscle spasms [Recovered/Resolved]
  - Diarrhoea [Recovered/Resolved]
  - COVID-19 [Recovered/Resolved]
  - Oral fungal infection [Recovered/Resolved]
  - Post procedural complication [Unknown]

NARRATIVE: CASE EVENT DATE: 20240101
